FAERS Safety Report 7443337-4 (Version None)
Quarter: 2011Q2

REPORT INFORMATION
  Report Type: 
  Country: None (occurrence: None)
  Receive Date: 20110428
  Receipt Date: 20110413
  Transmission Date: 20111010
  Serious: Yes (Other)
  Sender: FDA-Public Use
  Company Number: US-BAYER-2011-032353

PATIENT
  Age: 25 Year
  Sex: Female

DRUGS (2)
  1. YASMIN [Suspect]
     Dosage: UNK
     Dates: start: 20021101, end: 20030801
  2. YASMIN [Suspect]
     Dosage: UNK
     Dates: start: 20040201, end: 20040701

REACTIONS (1)
  - CHOLELITHIASIS [None]
